FAERS Safety Report 19201684 (Version 19)
Quarter: 2023Q4

REPORT INFORMATION
  Report Type: Spontaneous
  Country: IN (occurrence: IN)
  Receive Date: 20210430
  Receipt Date: 20231017
  Transmission Date: 20240109
  Serious: Yes (Hospitalization, Other)
  Sender: FDA-Public Use
  Company Number: IN-PFIZER INC-2021011522

PATIENT
  Age: 68 Year
  Sex: Female

DRUGS (11)
  1. PALBOCICLIB [Suspect]
     Active Substance: PALBOCICLIB
     Indication: Breast cancer metastatic
     Dosage: 125 MG, OD 3 WEEKS ON+1 WEEK OFF
     Route: 048
     Dates: start: 20191216
  2. PALBOCICLIB [Suspect]
     Active Substance: PALBOCICLIB
     Dosage: UNK
     Route: 048
     Dates: start: 20210612
  3. PALBOCICLIB [Suspect]
     Active Substance: PALBOCICLIB
     Dosage: 125 MG, 1X/DAY
     Route: 048
  4. ZOLEDRONIC ACID [Suspect]
     Active Substance: ZOLEDRONIC ACID
     Dosage: UNK
     Dates: start: 20200907
  5. CALCIUM\CHOLECALCIFEROL [Concomitant]
     Active Substance: CALCIUM\CHOLECALCIFEROL
     Dosage: 500 MG, 1X/DAY
     Route: 048
  6. MORPHINE [Concomitant]
     Active Substance: MORPHINE
     Dosage: UNK
  7. LETROZOLE [Concomitant]
     Active Substance: LETROZOLE
     Dosage: 2.5 MG 1X/DAY
     Route: 048
  8. SHELCAL-OS [Concomitant]
     Dosage: 500 MG, 2X/DAY (Q12HRLY )
     Route: 048
  9. DENOSUMAB [Concomitant]
     Active Substance: DENOSUMAB
     Dosage: UNK, EVERY 3 MONTHS
  10. TRD MD [Concomitant]
     Dosage: UNK, 2X/DAY
     Route: 048
  11. BEVON [COLECALCIFEROL;CYANOCOBALAMIN;DEXPANTHENOL;LYSINE HYDROCHLORIDE [Concomitant]
     Dosage: UNK, 1X/DAY
     Route: 048

REACTIONS (18)
  - Cholecystitis [Unknown]
  - Constipation [Not Recovered/Not Resolved]
  - Vomiting [Unknown]
  - Abdominal pain [Unknown]
  - Cerebral ischaemia [Unknown]
  - Pain [Unknown]
  - Decreased appetite [Unknown]
  - Asthenia [Unknown]
  - Refraction disorder [Unknown]
  - Blood pressure systolic increased [Unknown]
  - Heart rate increased [Unknown]
  - Peripheral sensory neuropathy [Unknown]
  - Musculoskeletal chest pain [Unknown]
  - Pruritus [Unknown]
  - Mucosal inflammation [Unknown]
  - Cholelithiasis [Unknown]
  - Haemoglobin decreased [Unknown]
  - White blood cell count decreased [Unknown]

NARRATIVE: CASE EVENT DATE: 20200901
